FAERS Safety Report 19166001 (Version 1)
Quarter: 2021Q2

REPORT INFORMATION
  Report Type: Spontaneous
  Country: US (occurrence: US)
  Receive Date: 20210422
  Receipt Date: 20210422
  Transmission Date: 20210717
  Serious: No
  Sender: FDA-Public Use
  Company Number: US-AMGEN-USASP2021059488

PATIENT
  Age: 74 Year
  Sex: Female

DRUGS (1)
  1. PROLIA [Suspect]
     Active Substance: DENOSUMAB
     Indication: OSTEOPOROSIS POSTMENOPAUSAL
     Dosage: UNK
     Route: 065
     Dates: start: 202003

REACTIONS (6)
  - Arthralgia [Unknown]
  - Musculoskeletal discomfort [Unknown]
  - Groin pain [Unknown]
  - Balance disorder [Unknown]
  - Pain in extremity [Unknown]
  - Adverse drug reaction [Recovered/Resolved]
